FAERS Safety Report 4433391-6 (Version None)
Quarter: 2004Q3

REPORT INFORMATION
  Report Type: 
  Country: None (occurrence: None)
  Receive Date: 20040824
  Receipt Date: 20040818
  Transmission Date: 20050211
  Serious: Yes (Life-Threatening, Hospitalization)
  Sender: FDA-Public Use
  Company Number: 200410493BNE

PATIENT
  Age: 79 Year
  Sex: Male
  Weight: 68 kg

DRUGS (5)
  1. ASPIRIN [Suspect]
     Indication: DEEP VENOUS THROMBOSIS PROPHYLAXIS
     Dosage: 150 MG, TOTAL DAILY, ORAL
     Route: 048
     Dates: start: 20040629, end: 20040705
  2. ROFECOXIB [Suspect]
     Indication: POST PROCEDURAL PAIN
     Dosage: 25 MG, TOTAL DAILY, ORAL
     Route: 048
     Dates: start: 20040629, end: 20040705
  3. CO-CODAMOL [Concomitant]
  4. TRAMADOL HCL [Concomitant]
  5. COD LIVER OIL [Concomitant]

REACTIONS (4)
  - GASTRIC ULCER [None]
  - GASTROINTESTINAL HAEMORRHAGE [None]
  - RENAL FAILURE ACUTE [None]
  - THROMBOSIS [None]
